FAERS Safety Report 25079306 (Version 1)
Quarter: 2025Q1

REPORT INFORMATION
  Report Type: Spontaneous
  Country: CO (occurrence: CO)
  Receive Date: 20250314
  Receipt Date: 20250314
  Transmission Date: 20250409
  Serious: Yes (Other)
  Sender: BAYER HEALTHCARE PHARMACEUTICALS INC.
  Company Number: CO-BAYER-2025A034992

PATIENT
  Age: 64 Year
  Sex: Female

DRUGS (1)
  1. ULTRAVIST [Suspect]
     Active Substance: IOPROMIDE
     Indication: Computerised tomogram

REACTIONS (6)
  - Anaphylactic shock [None]
  - Pruritus [None]
  - Rash [None]
  - Dyspnoea [None]
  - Hypoperfusion [None]
  - Hypotension [Recovering/Resolving]

NARRATIVE: CASE EVENT DATE: 20250306
